FAERS Safety Report 9304278 (Version 1)
Quarter: 2013Q2

REPORT INFORMATION
  Report Type: Spontaneous
  Country: ES (occurrence: ES)
  Receive Date: 20130522
  Receipt Date: 20130522
  Transmission Date: 20140414
  Serious: Yes (Other)
  Sender: FDA-Public Use
  Company Number: ES-MYLANLABS-2013S1010371

PATIENT
  Age: 72 Year
  Sex: Male

DRUGS (6)
  1. PHENYTOIN [Suspect]
     Indication: GRAND MAL CONVULSION
     Dosage: 18 MG/KG BY ACTUAL WEIGHT (1600MG)
     Route: 065
  2. PHENYTOIN [Suspect]
     Indication: GRAND MAL CONVULSION
     Route: 065
  3. PHENYTOIN [Suspect]
     Indication: GRAND MAL CONVULSION
     Route: 065
  4. VALPROIC ACID [Suspect]
     Indication: GRAND MAL CONVULSION
     Route: 065
  5. PROPOFOL [Concomitant]
     Dosage: 200 MG/H
     Route: 065
  6. MORPHINE [Concomitant]
     Dosage: 40 MG/DAY
     Route: 065

REACTIONS (2)
  - Ophthalmoplegia [Recovered/Resolved]
  - Hyperammonaemia [Unknown]
